FAERS Safety Report 10521196 (Version 1)
Quarter: 2014Q4

REPORT INFORMATION
  Report Type: Spontaneous
  Country: US (occurrence: US)
  Receive Date: 20141016
  Receipt Date: 20141016
  Transmission Date: 20150528
  Serious: No
  Sender: FDA-Public Use
  Company Number: US-009507513-1410USA007237

PATIENT
  Age: 25 Year

DRUGS (1)
  1. NUVARING [Suspect]
     Active Substance: ETHINYL ESTRADIOL\ETONOGESTREL
     Indication: CONTRACEPTION
     Dosage: UNK, 3 WEEKS IN 1 WEEK RING FREE BREAK
     Route: 067
     Dates: start: 2011

REACTIONS (2)
  - Metrorrhagia [Unknown]
  - Device expulsion [Unknown]

NARRATIVE: CASE EVENT DATE: 20141010
